FAERS Safety Report 8133022-8 (Version None)
Quarter: 2012Q1

REPORT INFORMATION
  Report Type: 
  Country: None (occurrence: None)
  Receive Date: 20120213
  Receipt Date: 20120206
  Transmission Date: 20120608
  Serious: Yes (Other)
  Sender: FDA-Public Use
  Company Number: PHEH2011US010519

PATIENT
  Sex: Female

DRUGS (18)
  1. ASPIRIN [Concomitant]
     Dosage: 325 MG, UNK
  2. LOMOTIL [Concomitant]
     Dosage: UNK UKN, UNK
  3. LOTRONEX [Concomitant]
     Dosage: UNK UKN, UNK
  4. ZOLPIDEM TARTRATE [Concomitant]
     Dosage: UNK UKN, UNK
  5. ADDERALL 5 [Concomitant]
     Indication: ASTHENIA
     Dosage: 10 MG, BID
  6. TRIAZOLAM [Concomitant]
     Indication: SLEEP DISORDER
     Dosage: 0.25 MG, UNK
  7. CYMBALTA [Concomitant]
     Dosage: UNK UKN, UNK
  8. XANAX [Concomitant]
     Indication: BIPOLAR DISORDER
     Dosage: 1 MG, QD
  9. METOCLOPRAMIDE [Concomitant]
     Indication: BIPOLAR DISORDER
     Dosage: 10 MG, UNK
  10. ATORVASTATIN [Concomitant]
     Indication: SLEEP DISORDER
     Dosage: 20 MG, UNK
  11. ALPRAZOLAM [Concomitant]
     Dosage: UNK UKN, BID
  12. GILENYA [Suspect]
     Indication: MULTIPLE SCLEROSIS
     Dosage: 0.5 MG, QD
     Route: 048
     Dates: start: 20111001
  13. DICYCLOMINE [Concomitant]
     Dosage: 10 MG, UNK
  14. LITHIUM CARBONATE [Concomitant]
     Indication: BIPOLAR DISORDER
     Dosage: UNK UKN, UNK
  15. LIPITOR [Concomitant]
     Indication: BLOOD CHOLESTEROL
     Dosage: UNK UKN, UNK
  16. AMPHETAMINE AND DEXTROAMPHETAMINE SALTS [Concomitant]
     Dosage: 10 MG, UNK
  17. NUVIGIL [Suspect]
     Dosage: 250 MG, UNK
     Dates: start: 20110623
  18. CITALOPRAM HYDROBROMIDE [Concomitant]
     Dosage: 20 MG, QD

REACTIONS (14)
  - VISUAL ACUITY REDUCED [None]
  - MULTIPLE SCLEROSIS RELAPSE [None]
  - MEMORY IMPAIRMENT [None]
  - BOWEL MOVEMENT IRREGULARITY [None]
  - DYSARTHRIA [None]
  - FATIGUE [None]
  - WEIGHT DECREASED [None]
  - INSOMNIA [None]
  - NEUROPATHY PERIPHERAL [None]
  - ABDOMINAL DISCOMFORT [None]
  - APHAGIA [None]
  - BALANCE DISORDER [None]
  - DEPRESSION [None]
  - ASTHENIA [None]
